FAERS Safety Report 7415286-9 (Version None)
Quarter: 2011Q2

REPORT INFORMATION
  Report Type: 
  Country: None (occurrence: None)
  Receive Date: 20110414
  Receipt Date: 20110211
  Transmission Date: 20111010
  Serious: Yes (Other)
  Sender: FDA-Public Use
  Company Number: FR-ROCHE-769198

PATIENT
  Age: 56 Year
  Sex: Female

DRUGS (2)
  1. TOCILIZUMAB [Suspect]
     Indication: STILL'S DISEASE ADULT ONSET
     Route: 065
  2. PREDNISONE [Concomitant]

REACTIONS (1)
  - ANGIODERMATITIS [None]
